FAERS Safety Report 6511020-5 (Version None)
Quarter: 2009Q4

REPORT INFORMATION
  Report Type: 
  Country: None (occurrence: None)
  Receive Date: 20091222
  Receipt Date: 20090216
  Transmission Date: 20100525
  Serious: No
  Sender: FDA-Public Use
  Company Number: US-ASTRAZENECA-2009UW04428

PATIENT
  Sex: Female
  Weight: 63.5 kg

DRUGS (4)
  1. CRESTOR [Suspect]
     Indication: BLOOD CHOLESTEROL INCREASED
     Route: 048
     Dates: start: 20090207
  2. DIAZEM [Concomitant]
     Indication: HYPERTENSION
  3. CARDIZEM [Concomitant]
     Indication: HYPERTENSION
  4. GENERIC FOSAMAX [Concomitant]
     Indication: BONE DISORDER

REACTIONS (1)
  - MUSCLE SPASMS [None]
